FAERS Safety Report 9273164 (Version 4)
Quarter: 2013Q3

REPORT INFORMATION
  Report Type: Report from Study
  Country: NL (occurrence: NL)
  Receive Date: 20130506
  Receipt Date: 20130801
  Transmission Date: 20140515
  Serious: Yes (Hospitalization)
  Sender: FDA-Public Use
  Company Number: PHHO2011NL11076

PATIENT
  Age: 65 Year
  Sex: Female
  Weight: 69 kg

DRUGS (16)
  1. BLINDED ENALAPRIL [Suspect]
     Indication: CARDIAC FAILURE CHRONIC
     Dosage: DOUBLE BLINDED
     Route: 048
     Dates: start: 20101110, end: 20110711
  2. BLINDED LCZ696 [Suspect]
     Indication: CARDIAC FAILURE CHRONIC
     Dosage: DOUBLE BLINDED
     Route: 048
     Dates: start: 20101110, end: 20110711
  3. BLINDED NO TREATMENT RECEIVED [Suspect]
     Indication: CARDIAC FAILURE CHRONIC
     Dosage: DOUBLE BLINDED
     Route: 048
     Dates: start: 20101110, end: 20110711
  4. BLINDED ENALAPRIL [Suspect]
     Dosage: DOUBLE BLINDED
     Route: 048
     Dates: start: 20110729, end: 20130404
  5. BLINDED LCZ696 [Suspect]
     Dosage: DOUBLE BLINDED
     Route: 048
     Dates: start: 20110729, end: 20130404
  6. BLINDED NO TREATMENT RECEIVED [Suspect]
     Dosage: DOUBLE BLINDED
     Route: 048
     Dates: start: 20110729, end: 20130404
  7. AMIODARONE [Suspect]
     Dosage: 600 MG, UNK
     Dates: start: 20130410
  8. PERINDOPRIL [Suspect]
     Dosage: 4 MG, UNK
     Dates: start: 20130405, end: 20130425
  9. COLCHICINE [Suspect]
     Dosage: UNK
     Dates: start: 20120913, end: 20130426
  10. PROMOCARD [Concomitant]
     Dosage: 30 MG, QD
  11. METOPROLOL [Concomitant]
     Dosage: 50 MG, QD
  12. ALLOPURINOL [Concomitant]
     Dosage: 100 MG, QD
  13. FUROSEMIDE [Concomitant]
     Dosage: 40 MG, QD
  14. FUROSEMIDE [Concomitant]
     Dosage: 20 MG, QD
  15. CRESTOR [Concomitant]
     Dosage: 10 MG, QD
  16. ASCAL [Concomitant]
     Dosage: 100 MG, QD

REACTIONS (2)
  - Diarrhoea [Recovered/Resolved]
  - Ventricular tachycardia [Recovered/Resolved]
